FAERS Safety Report 13372639 (Version 1)
Quarter: 2017Q1

REPORT INFORMATION
  Report Type: Spontaneous
  Country: US (occurrence: US)
  Receive Date: 20170327
  Receipt Date: 20170327
  Transmission Date: 20170429
  Serious: No
  Sender: FDA-Public Use
  Company Number: US-INTERPRAG-PM-OCA2017-00160

PATIENT

DRUGS (10)
  1. CARVEDILOL. [Concomitant]
     Active Substance: CARVEDILOL
  2. ATORVASTATIN [Concomitant]
     Active Substance: ATORVASTATIN
  3. TAMSULOSIN [Concomitant]
     Active Substance: TAMSULOSIN
  4. RANEXA [Concomitant]
     Active Substance: RANOLAZINE
  5. OCALIVA [Suspect]
     Active Substance: OBETICHOLIC ACID
     Indication: CHOLANGITIS
     Dosage: 10 MG, QD
     Route: 048
     Dates: start: 20161223
  6. ESZOPICLONE. [Concomitant]
     Active Substance: ESZOPICLONE
  7. BUDESONIDE. [Concomitant]
     Active Substance: BUDESONIDE
  8. METOLAZONE. [Concomitant]
     Active Substance: METOLAZONE
  9. EPLERENONE. [Concomitant]
     Active Substance: EPLERENONE
  10. ESCITALOPRAM [Concomitant]
     Active Substance: ESCITALOPRAM OXALATE

REACTIONS (1)
  - Pruritus [Unknown]
